FAERS Safety Report 12335081 (Version 1)
Quarter: 2016Q2

REPORT INFORMATION
  Report Type: Other
  Country: FR (occurrence: FR)
  Receive Date: 20160504
  Receipt Date: 20160504
  Transmission Date: 20160815
  Serious: Yes (Other)
  Sender: FDA-Public Use
  Company Number: FR-MYLANLABS-2016M1018060

PATIENT

DRUGS (2)
  1. EPIPEN [Suspect]
     Active Substance: EPINEPHRINE
     Indication: FOOD ALLERGY
     Dosage: DAILY DOSE: 1 DF DOSAGE FORM EVERY DAYS
     Route: 030
     Dates: start: 20160403
  2. REMICADE [Concomitant]
     Active Substance: INFLIXIMAB
     Indication: CROHN^S DISEASE
     Route: 048

REACTIONS (3)
  - Medication error [Recovered/Resolved]
  - Wrong technique in product usage process [Recovered/Resolved]
  - Administration site ischaemia [Recovered/Resolved]

NARRATIVE: CASE EVENT DATE: 20160403
